FAERS Safety Report 19867482 (Version 1)
Quarter: 2021Q3

REPORT INFORMATION
  Report Type: Spontaneous
  Country: US (occurrence: US)
  Receive Date: 20210922
  Receipt Date: 20210922
  Transmission Date: 20211014
  Serious: Yes (Other)
  Sender: FDA-Public Use
  Company Number: US-SA-2021SA311067

PATIENT
  Age: 62 Year
  Sex: Male

DRUGS (1)
  1. DUPIXENT [Suspect]
     Active Substance: DUPILUMAB
     Indication: DERMATITIS ATOPIC
     Dosage: 300 MG, QOW
     Route: 058
     Dates: start: 20190604

REACTIONS (14)
  - Exposure to household chemicals [Unknown]
  - Asthenia [Recovering/Resolving]
  - Nasal congestion [Recovering/Resolving]
  - Pruritus [Not Recovered/Not Resolved]
  - Epistaxis [Recovering/Resolving]
  - Dry skin [Not Recovered/Not Resolved]
  - Sleep disorder [Recovering/Resolving]
  - Product dose omission in error [Unknown]
  - Therapeutic response decreased [Not Recovered/Not Resolved]
  - Vitamin B12 decreased [Recovering/Resolving]
  - Pneumonia [Recovered/Resolved]
  - Pain of skin [Not Recovered/Not Resolved]
  - Skin fissures [Not Recovered/Not Resolved]
  - Influenza like illness [Unknown]

NARRATIVE: CASE EVENT DATE: 202105
